FAERS Safety Report 9469654 (Version 2)
Quarter: 2013Q3

REPORT INFORMATION
  Report Type: Spontaneous
  Country: DE (occurrence: DE)
  Receive Date: 20130822
  Receipt Date: 20130822
  Transmission Date: 20140515
  Serious: Yes (Life-Threatening, Hospitalization, Other)
  Sender: FDA-Public Use
  Company Number: DE-ROCHE-1247659

PATIENT
  Age: 46 Year
  Sex: Male

DRUGS (4)
  1. ROACTEMRA [Suspect]
     Indication: RHEUMATOID ARTHRITIS
     Route: 042
     Dates: start: 201210
  2. IBUPROFEN [Concomitant]
     Route: 065
  3. OMEPRAZOL [Concomitant]
     Route: 065
  4. TILIDINE [Concomitant]
     Route: 065

REACTIONS (4)
  - Abscess [Unknown]
  - Extradural abscess [Recovering/Resolving]
  - Musculoskeletal pain [Unknown]
  - Intervertebral discitis [Recovering/Resolving]
